FAERS Safety Report 25780044 (Version 2)
Quarter: 2025Q3

REPORT INFORMATION
  Report Type: Spontaneous
  Country: CN (occurrence: CN)
  Receive Date: 20250909
  Receipt Date: 20250918
  Transmission Date: 20251021
  Serious: Yes (Death)
  Sender: ELI LILLY AND COMPANY
  Company Number: CN-ELI_LILLY_AND_COMPANY-CN202509004751

PATIENT
  Age: 74 Year
  Sex: Female

DRUGS (1)
  1. KISUNLA [Suspect]
     Active Substance: DONANEMAB-AZBT
     Indication: Dementia Alzheimer^s type
     Route: 042
     Dates: start: 20250814, end: 20250814

REACTIONS (1)
  - Death [Fatal]
